FAERS Safety Report 19399627 (Version 1)
Quarter: 2021Q2

REPORT INFORMATION
  Report Type: Spontaneous
  Country: CN (occurrence: CN)
  Receive Date: 20210610
  Receipt Date: 20210610
  Transmission Date: 20210717
  Serious: Yes (Hospitalization)
  Sender: FDA-Public Use
  Company Number: CN-ASTRAZENECA-2021A510427

PATIENT
  Age: 23910 Day
  Sex: Male
  Weight: 80 kg

DRUGS (2)
  1. BRILINTA [Suspect]
     Active Substance: TICAGRELOR
     Indication: CORONARY ARTERIAL STENT INSERTION
     Route: 048
     Dates: start: 20190910, end: 20190913
  2. BRILINTA [Suspect]
     Active Substance: TICAGRELOR
     Indication: ARTERIOSCLEROSIS
     Route: 048
     Dates: start: 20190910, end: 20190913

REACTIONS (2)
  - Dyspnoea [Recovering/Resolving]
  - Chest discomfort [Recovering/Resolving]

NARRATIVE: CASE EVENT DATE: 20190910
